FAERS Safety Report 5993316-9 (Version None)
Quarter: 2008Q4

REPORT INFORMATION
  Report Type: 
  Country: None (occurrence: None)
  Receive Date: 20081212
  Receipt Date: 20081202
  Transmission Date: 20090506
  Serious: Yes (Hospitalization)
  Sender: FDA-Public Use
  Company Number: FR-WYE-G02696808

PATIENT
  Age: 61 Year
  Sex: Male

DRUGS (2)
  1. EFFEXOR [Suspect]
     Indication: DEPRESSION
     Route: 048
     Dates: start: 20080701, end: 20080731
  2. NOROXIN [Interacting]
     Indication: CYSTITIS
     Route: 048
     Dates: start: 20080725, end: 20080731

REACTIONS (6)
  - AGGRESSION [None]
  - CYSTITIS [None]
  - HYPERHIDROSIS [None]
  - MYOCLONUS [None]
  - POTENTIATING DRUG INTERACTION [None]
  - VOMITING [None]
